FAERS Safety Report 8171931-4 (Version None)
Quarter: 2012Q1

REPORT INFORMATION
  Report Type: 
  Country: None (occurrence: None)
  Receive Date: 20120228
  Receipt Date: 20120222
  Transmission Date: 20120608
  Serious: Yes (Hospitalization)
  Sender: FDA-Public Use
  Company Number: DE-ROCHE-1042262

PATIENT

DRUGS (8)
  1. PROCARBAZINE HYDROCHLORIDE [Suspect]
     Indication: HODGKIN'S DISEASE
     Dosage: LAST DOSE PRIOR TO SAE: 05/SEP/2010
     Route: 042
  2. DOXORUBICIN HYDROCHLORIDE [Suspect]
     Indication: HODGKIN'S DISEASE
     Dosage: LAST DOSE PRIOR TO SAE: 05/SEP/2010
     Route: 042
  3. VINCRISTINE [Suspect]
     Indication: HODGKIN'S DISEASE
     Dosage: LAST DOSE PRIOR TO SAE: 05/SEP/2010
     Route: 042
  4. RITUXAN [Suspect]
     Indication: HODGKIN'S DISEASE
     Dosage: LAST DOSE PRIOR TO SAE: 23/AUG/2010
     Route: 042
  5. ETOPOSIDE [Suspect]
     Indication: HODGKIN'S DISEASE
     Dosage: LAST DOSE PRIOR TO SAE: 05/SEP/2010
     Route: 042
  6. CYCLOPHOSPHAMIDE [Suspect]
     Indication: HODGKIN'S DISEASE
     Dosage: LAST DOSE PRIOR TO SAE: 05/SEP/2010
     Route: 042
  7. BLEOMYCIN SULFATE [Suspect]
     Indication: HODGKIN'S DISEASE
     Dosage: LAST DOSE PRIOR TO SAE: 05/SEP/2010
     Route: 042
  8. PREDNISONE [Suspect]
     Indication: HODGKIN'S DISEASE
     Dosage: LAST DOSE PRIOR TO SAE: 05/SEP/2010
     Route: 042

REACTIONS (1)
  - DEPRESSION [None]
